FAERS Safety Report 17254978 (Version 1)
Quarter: 2020Q1

REPORT INFORMATION
  Report Type: Report from Study
  Country: None (occurrence: NZ)
  Receive Date: 20200109
  Receipt Date: 20200109
  Transmission Date: 20200409
  Serious: Yes (Hospitalization)
  Sender: FDA-Public Use
  Company Number: NZ-ABBVIE-20K-118-3226113-00

PATIENT
  Age: 74 Year
  Sex: Female

DRUGS (1)
  1. HUMIRA [Suspect]
     Active Substance: ADALIMUMAB
     Indication: PSORIATIC ARTHROPATHY
     Route: 058
     Dates: start: 20161212

REACTIONS (7)
  - Gait disturbance [Not Recovered/Not Resolved]
  - Impaired healing [Unknown]
  - Contusion [Unknown]
  - Arthropathy [Unknown]
  - Fall [Recovered/Resolved]
  - Fall [Unknown]
  - Coccydynia [Unknown]

NARRATIVE: CASE EVENT DATE: 20190627
